FAERS Safety Report 4822220-4 (Version None)
Quarter: 2005Q4

REPORT INFORMATION
  Report Type: 
  Country: None (occurrence: None)
  Receive Date: 20051103
  Receipt Date: 20051017
  Transmission Date: 20060501
  Serious: Yes (Life-Threatening, Hospitalization, Other)
  Sender: FDA-Public Use
  Company Number: USA0510111066

PATIENT
  Age: 57 Year
  Sex: Male
  Weight: 118 kg

DRUGS (10)
  1. HUMULIN 70/30 [Suspect]
     Indication: DIABETES MELLITUS
     Dosage: 82 U DAY
     Dates: start: 19990101
  2. GENERLAC (LACTULOSE) [Concomitant]
  3. PLAVIX [Concomitant]
  4. COUMADIN [Concomitant]
  5. COMBIVENT [Concomitant]
  6. FLOVENT [Concomitant]
  7. POTASSIUM CHLORIDE [Concomitant]
  8. FUROSEMIDE [Concomitant]
  9. NYSTATIN [Concomitant]
  10. TOPROL-XL [Concomitant]

REACTIONS (6)
  - AMNESIA [None]
  - CARDIAC ARREST [None]
  - CORONARY ARTERY OCCLUSION [None]
  - DELIRIUM [None]
  - MYOCARDIAL INFARCTION [None]
  - SLEEP DISORDER [None]
